FAERS Safety Report 25169320 (Version 1)
Quarter: 2025Q2

REPORT INFORMATION
  Report Type: Spontaneous
  Country: FR (occurrence: FR)
  Receive Date: 20250407
  Receipt Date: 20250407
  Transmission Date: 20250717
  Serious: Yes (Hospitalization)
  Sender: MYLAN
  Company Number: None

PATIENT
  Age: 61 Year
  Sex: Female

DRUGS (4)
  1. PANTOPRAZOLE [Suspect]
     Active Substance: PANTOPRAZOLE
     Indication: Gastrooesophageal reflux disease
     Dates: start: 20240701, end: 20250303
  2. PANTOPRAZOLE [Suspect]
     Active Substance: PANTOPRAZOLE
     Route: 048
     Dates: start: 20240701, end: 20250303
  3. PANTOPRAZOLE [Suspect]
     Active Substance: PANTOPRAZOLE
     Route: 048
     Dates: start: 20240701, end: 20250303
  4. PANTOPRAZOLE [Suspect]
     Active Substance: PANTOPRAZOLE
     Dates: start: 20240701, end: 20250303

REACTIONS (1)
  - Eosinophilia [Recovering/Resolving]

NARRATIVE: CASE EVENT DATE: 20250203
